FAERS Safety Report 26112626 (Version 1)
Quarter: 2025Q4

REPORT INFORMATION
  Report Type: Spontaneous
  Country: US (occurrence: US)
  Receive Date: 20251202
  Receipt Date: 20251202
  Transmission Date: 20260117
  Serious: Yes (Other)
  Sender: LUPIN
  Company Number: US-MLMSERVICE-20250919-PI650671-00150-1

PATIENT
  Age: 55 Year
  Sex: Female

DRUGS (8)
  1. FLUCONAZOLE [Suspect]
     Active Substance: FLUCONAZOLE
     Indication: Candida infection
     Dosage: UNK
     Route: 065
  2. ISAVUCONAZONIUM SULFATE [Suspect]
     Active Substance: ISAVUCONAZONIUM SULFATE
     Indication: Candida infection
     Dosage: UNK
     Route: 065
  3. ISAVUCONAZONIUM SULFATE [Suspect]
     Active Substance: ISAVUCONAZONIUM SULFATE
     Dosage: UNK (INFUSION RATE STARTED AT 25 ML/HR AND SUBSEQUENTLY INCREASED BY 25 ML/HR EVERY 15 MIN UNTIL IT REACHED A FINAL INFUSION RATE OF 225 ML/HR)
  4. NYSTATIN [Concomitant]
     Active Substance: NYSTATIN
     Indication: Candida infection
     Dosage: UNK
  5. DIPHENHYDRAMINE [Concomitant]
     Active Substance: DIPHENHYDRAMINE
     Indication: Hypersensitivity
     Dosage: UNK
     Route: 065
  6. RIMEGEPANT [Concomitant]
     Active Substance: RIMEGEPANT
     Indication: Migraine
     Dosage: UNK
     Route: 065
  7. DEXTROSE [Concomitant]
     Active Substance: DEXTROSE MONOHYDRATE
     Indication: Vehicle solution use
     Dosage: UNK (INFUSION RATE STARTED AT 25 ML/HR AND SUBSEQUENTLY INCREASED BY 25 ML/HR EVERY 15 MIN UNTIL IT REACHED A FINAL INFUSION RATE OF 225 ML/HR)
     Route: 065
  8. FLUTICASONE PROPIONATE [Concomitant]
     Active Substance: FLUTICASONE PROPIONATE
     Indication: Asthma
     Dosage: UNK
     Route: 065

REACTIONS (1)
  - Hypersensitivity [Unknown]
